FAERS Safety Report 10064358 (Version 1)
Quarter: 2014Q2

REPORT INFORMATION
  Report Type: Spontaneous
  Country: US (occurrence: US)
  Receive Date: 20140408
  Receipt Date: 20140408
  Transmission Date: 20141212
  Serious: Yes (Other)
  Sender: FDA-Public Use
  Company Number: US-JNJFOC-20140401038

PATIENT
  Sex: 0

DRUGS (4)
  1. GOLIMUMAB [Suspect]
     Indication: UVEITIS
     Route: 058
  2. INFLIXIMAB [Suspect]
     Indication: UVEITIS
     Route: 042
  3. ADALIMUMAB [Suspect]
     Indication: UVEITIS
     Route: 065
  4. METHOTREXATE [Concomitant]
     Route: 065

REACTIONS (3)
  - Cataract [Unknown]
  - Off label use [Unknown]
  - Antinuclear antibody positive [Unknown]
